FAERS Safety Report 8484987-6 (Version None)
Quarter: 2012Q3

REPORT INFORMATION
  Report Type: 
  Country: None (occurrence: None)
  Receive Date: 20120703
  Receipt Date: 20120626
  Transmission Date: 20120928
  Serious: Yes (Other)
  Sender: FDA-Public Use
  Company Number: GB-PFIZER INC-2012153342

PATIENT
  Age: 69 Year
  Sex: Male

DRUGS (5)
  1. DICLOFENAC SODIUM [Concomitant]
     Indication: PAIN
     Dosage: 50 MG, 3X/DAY
     Dates: start: 20111117
  2. LACOSAMIDE [Concomitant]
     Indication: EPILEPSY
     Dosage: 150 MG, 2X/DAY
     Route: 048
  3. VALPROIC ACID [Concomitant]
     Indication: EPILEPSY
     Dosage: 500 MG, 2X/DAY
     Route: 048
  4. ACETAMINOPHEN AND CODEINE PHOSPHATE [Concomitant]
     Indication: PAIN
     Dosage: 2 DF, 4X/DAY, 2 UP TO 4 TIMES A DAY
     Route: 048
     Dates: start: 20111117
  5. METRONIDAZOLE [Suspect]
     Indication: INFECTION
     Dosage: 400 MG, 3X/DAY
     Route: 048
     Dates: start: 20111117, end: 20111118

REACTIONS (1)
  - EPILEPSY [None]
